FAERS Safety Report 18130132 (Version 1)
Quarter: 2020Q3

REPORT INFORMATION
  Report Type: Spontaneous
  Country: US (occurrence: US)
  Receive Date: 20200810
  Receipt Date: 20200810
  Transmission Date: 20201103
  Serious: Yes (Hospitalization)
  Sender: FDA-Public Use
  Company Number: None

PATIENT
  Age: 79 Year
  Sex: Male
  Weight: 93.9 kg

DRUGS (22)
  1. ALBUTEROL HFA 2 PUFF INH Q4H AND Q6H PRN [Concomitant]
     Dates: start: 20200725, end: 20200726
  2. PRECEDEX INFUSION [Concomitant]
     Dates: start: 20200730, end: 20200802
  3. FAMOTIDINE 20MG IV Q12H [Concomitant]
     Dates: start: 20200726, end: 20200730
  4. GABAPENTIN 300MG PO TID [Concomitant]
     Dates: start: 20200725, end: 20200730
  5. INSULIN LISPRO SLIDING SCALE 4X/DAY [Concomitant]
     Dates: start: 20200727
  6. ACETAMINOPHEN 650MG PO Q6H PRN PAIN 1?3 [Concomitant]
     Dates: start: 20200725
  7. APIXABAN 5MG PO BID [Concomitant]
     Dates: start: 20200725, end: 20200726
  8. AZITHROMYCIN 500MG IV DAILY [Concomitant]
     Dates: start: 20200725, end: 20200730
  9. LANTUS SUBQ QHS [Concomitant]
     Dates: start: 20200729
  10. METHIMAZOLE. [Concomitant]
     Active Substance: METHIMAZOLE
     Dates: start: 20200725, end: 20200801
  11. METHYLPREDNISOLONE 60MG Q6H [Concomitant]
     Dates: start: 20200725, end: 20200730
  12. DILTIAZEM INFUSION [Concomitant]
     Dates: start: 20200725, end: 20200726
  13. NOREPINEPHRINE INFUSION [Concomitant]
     Dates: start: 20200726, end: 20200805
  14. PROPOFOL INFUSION [Concomitant]
     Active Substance: PROPOFOL
     Dates: start: 20200726, end: 20200801
  15. REMDESIVIR. [Suspect]
     Active Substance: REMDESIVIR
     Indication: COVID-19 PNEUMONIA
     Dosage: ?          OTHER FREQUENCY:200MGX1,100MG/DX4;?
     Route: 042
     Dates: start: 20200725, end: 20200729
  16. AMIODARONE BOLUS AND INFUSION [Concomitant]
     Dates: start: 20200802, end: 20200807
  17. FENTANYL INFUSION [Concomitant]
     Active Substance: FENTANYL
     Dates: start: 20200726, end: 20200809
  18. FOLIC ACID 1MG PO DAILY [Concomitant]
     Dates: start: 20200725, end: 20200804
  19. HEPARIN INFUSION [Concomitant]
     Dates: start: 20200725, end: 20200730
  20. CEFEPIME 1G IV Q8H [Concomitant]
     Dates: start: 20200725, end: 20200730
  21. CARDIZEM CD 120MG PO DAILY [Concomitant]
     Dates: start: 20200726, end: 20200730
  22. MEROPENEM. [Concomitant]
     Active Substance: MEROPENEM
     Dates: start: 20200804, end: 20200807

REACTIONS (2)
  - Haemodialysis [None]
  - Acute kidney injury [None]

NARRATIVE: CASE EVENT DATE: 20200728
